FAERS Safety Report 9929096 (Version 1)
Quarter: 2014Q1

REPORT INFORMATION
  Report Type: Spontaneous
  Country: CA (occurrence: None)
  Receive Date: 20140225
  Receipt Date: 20140225
  Transmission Date: 20141002
  Serious: Yes (Other)
  Sender: FDA-Public Use
  Company Number: 2014HINLIT0151

PATIENT
  Age: 41 Year
  Sex: Male

DRUGS (12)
  1. EFAVIRENZ [Suspect]
     Indication: ANTIRETROVIRAL THERAPY
  2. GINKGO BILOBA (GINKGO BILOBA) [Suspect]
  3. ZIDOVUDINE [Concomitant]
  4. LAMIVUDINE [Concomitant]
  5. HERBAL SUPPLEMENT OF OMEGA-3 FATTY ACID [Concomitant]
  6. HERBAL SUPPLEMENT OF CALCIUM [Concomitant]
  7. HERBAL SUPPLEMENT OF MAGNESIUM [Concomitant]
  8. HERBAL SUPPLEMENT OF VITAMIN D [Concomitant]
  9. HERBAL SUPPLEMENT OF MULTIVITAMIN [Concomitant]
  10. HERBAL SUPPLEMENT OF FLAX OIL [Concomitant]
  11. HERBAL SUPPLEMENT OF RUTIN [Concomitant]
  12. HORSE CHESTNUT [Concomitant]

REACTIONS (2)
  - Drug interaction [None]
  - Virologic failure [None]
